FAERS Safety Report 4727563-0 (Version None)
Quarter: 2005Q3

REPORT INFORMATION
  Report Type: 
  Country: None (occurrence: None)
  Receive Date: 20050727
  Receipt Date: 20050727
  Transmission Date: 20060218
  Serious: Yes (Other)
  Sender: FDA-Public Use
  Company Number: None

PATIENT
  Age: 55 Year
  Sex: Male
  Weight: 86.1834 kg

DRUGS (9)
  1. METFORMIN 850MG TABLETS [Suspect]
     Indication: DIABETES MELLITUS
     Dosage: 1 TABLET THREE TIMES DAILY
     Dates: start: 20050314
  2. FUROSEMIDE [Concomitant]
  3. COLCHICINE [Concomitant]
  4. INDOCIN [Concomitant]
  5. BENAZEPRIL HCL [Concomitant]
  6. LANTUS [Concomitant]
  7. PLAVIX [Concomitant]
  8. COREG [Concomitant]
  9. GLIPIZIDE [Concomitant]

REACTIONS (2)
  - DIABETES MELLITUS INADEQUATE CONTROL [None]
  - PHARMACEUTICAL PRODUCT COMPLAINT [None]
